FAERS Safety Report 20779617 (Version 2)
Quarter: 2022Q2

REPORT INFORMATION
  Report Type: Report from Study
  Country: AU (occurrence: None)
  Receive Date: 20220503
  Receipt Date: 20220516
  Transmission Date: 20220720
  Serious: Yes (Hospitalization)
  Sender: FDA-Public Use
  Company Number: AU-ROCHE-3086106

PATIENT
  Age: 42 Year
  Sex: Male
  Weight: 110 kg

DRUGS (31)
  1. GLOFITAMAB [Suspect]
     Active Substance: GLOFITAMAB
     Indication: Diffuse large B-cell lymphoma
     Dosage: LAST DOSE PRIOR TO AE:11/APR/2022
     Route: 042
     Dates: start: 20220411
  2. POLATUZUMAB VEDOTIN [Suspect]
     Active Substance: POLATUZUMAB VEDOTIN
     Indication: Diffuse large B-cell lymphoma
     Dosage: LAST DOSE PRIOR TO AE:11/APR/2022
     Route: 042
     Dates: start: 20220404
  3. RITUXIMAB [Suspect]
     Active Substance: RITUXIMAB
     Indication: Diffuse large B-cell lymphoma
     Dosage: LAST DOSE PRIOR TO AE:04/APR/2022
     Route: 041
     Dates: start: 20220315
  4. CYCLOPHOSPHAMIDE [Suspect]
     Active Substance: CYCLOPHOSPHAMIDE
     Indication: Diffuse large B-cell lymphoma
     Dosage: LAST DOSE PRIOR TO AE:04/APR/2022
     Route: 042
     Dates: start: 20220315
  5. DOXORUBICIN [Suspect]
     Active Substance: DOXORUBICIN
     Indication: Diffuse large B-cell lymphoma
     Dosage: LAST DOSE PRIOR TO AE:04/APR/2022
     Route: 042
     Dates: start: 20220315
  6. PREDNISOLONE [Suspect]
     Active Substance: PREDNISOLONE
     Indication: Diffuse large B-cell lymphoma
     Dosage: ON DAYS 1-5 OF EVERY 21-DAY CYCLE?LAST DOSE PRIOR TO AE:04/APR/2022
     Route: 048
     Dates: start: 20220315
  7. LYRICA [Concomitant]
     Active Substance: PREGABALIN
     Dosage: 75 MG BD PO
     Dates: start: 2011
  8. SALPRAZ [Concomitant]
     Dosage: 20 MG OD PO
     Dates: start: 2021
  9. ALLOPURINOL [Concomitant]
     Active Substance: ALLOPURINOL
     Dosage: 300 MG OD PO
     Dates: start: 20220310
  10. VALACYCLOVIR HYDROCHLORIDE [Concomitant]
     Active Substance: VALACYCLOVIR HYDROCHLORIDE
     Dosage: 500 MG OD PO
     Dates: start: 20220310
  11. METHOXYFLURANE [Concomitant]
     Active Substance: METHOXYFLURANE
     Dosage: 1 PUFF, INHALE, STAT
     Dates: start: 20220310
  12. BETAMETHASONE;CALCIPOTRIOL [Concomitant]
     Dosage: 50 MCG/500 MCGS PRN TOP
     Dates: start: 202009
  13. ENSTILAR [Concomitant]
     Active Substance: BETAMETHASONE DIPROPIONATE\CALCIPOTRIENE HYDRATE
     Dosage: 10 MG TID PO PRN
     Dates: start: 20220327
  14. METOCLOPRAMIDE [Concomitant]
     Active Substance: METOCLOPRAMIDE
     Dates: start: 20220327
  15. ACETAMINOPHEN [Concomitant]
     Active Substance: ACETAMINOPHEN
     Dosage: 1000 MG PO STAT
     Dates: start: 20220315
  16. ACETAMINOPHEN [Concomitant]
     Active Substance: ACETAMINOPHEN
     Dosage: 1000 MG QLD PO
     Dates: start: 20220412
  17. ACETAMINOPHEN [Concomitant]
     Active Substance: ACETAMINOPHEN
     Dosage: 1000 MG PRN
     Dates: start: 20220420, end: 20220420
  18. CETIRIZINE [Concomitant]
     Active Substance: CETIRIZINE HYDROCHLORIDE
     Dosage: 10 MG PO STAT
     Dates: start: 20220315
  19. SODIUM CHLORIDE [Concomitant]
     Active Substance: SODIUM CHLORIDE
     Dosage: 0.9% 1000 IV STAT
     Dates: start: 20220315
  20. PALONOSETRON [Concomitant]
     Active Substance: PALONOSETRON
     Dosage: 250 MCG IV STAT
     Dates: start: 20220315
  21. MAGNESIUM [Concomitant]
     Active Substance: MAGNESIUM
     Dosage: 2 X 500 MG BD PO
     Dates: start: 20220329
  22. TEMAZEPAM [Concomitant]
     Active Substance: TEMAZEPAM
     Dosage: 10MG PO PRN
     Dates: start: 20220315
  23. LIPEGFILGRASTIM [Concomitant]
     Active Substance: LIPEGFILGRASTIM
     Dosage: 6 MG SUBCUT INJ, DAY 4 OF EACH
     Dates: start: 20220407
  24. CALCIUM CARBONATE\SODIUM ALGINATE\SODIUM BICARBONATE [Concomitant]
     Active Substance: CALCIUM CARBONATE\SODIUM ALGINATE\SODIUM BICARBONATE
     Dosage: 500 MG/267 MG,160 MG 10-20ML ?? PRN PO
     Dates: start: 20220407
  25. ONDANSETRON [Concomitant]
     Active Substance: ONDANSETRON
     Dosage: 4 MG TDS SIL
     Dates: start: 20220410, end: 20220410
  26. OXYCODONE [Concomitant]
     Active Substance: OXYCODONE
     Dosage: 5 MG QID PO
     Dates: start: 20220412, end: 20220412
  27. ENOXAPARIN [Concomitant]
     Active Substance: ENOXAPARIN
     Dosage: 40 MG OD SN
     Dates: start: 20220410, end: 20220411
  28. NOVORAPID [Concomitant]
     Active Substance: INSULIN ASPART
     Dosage: 5 UNITS SIC
     Dates: start: 20220411, end: 20220411
  29. NOVORAPID [Concomitant]
     Active Substance: INSULIN ASPART
     Dosage: 2 UNITS SIC
     Dates: start: 20220420
  30. NOVORAPID [Concomitant]
     Active Substance: INSULIN ASPART
     Dosage: 6 UNITS SIC
     Dates: start: 20220421
  31. INSULIN ASPART [Concomitant]
     Active Substance: INSULIN ASPART
     Dosage: IOU OD SIC
     Dates: start: 20220421, end: 20220422

REACTIONS (1)
  - Cytokine release syndrome [Recovered/Resolved]

NARRATIVE: CASE EVENT DATE: 20220422
